FAERS Safety Report 23678686 (Version 2)
Quarter: 2024Q1

REPORT INFORMATION
  Report Type: Spontaneous
  Country: NL (occurrence: NL)
  Receive Date: 20240327
  Receipt Date: 20240329
  Transmission Date: 20240410
  Serious: Yes (Death, Congenital Anomaly, Other)
  Sender: FDA-Public Use
  Company Number: None

PATIENT

DRUGS (1)
  1. STELARA [Suspect]
     Active Substance: USTEKINUMAB
     Indication: Crohn^s disease
     Dosage: 1X PER 12 WEKEN
     Route: 058
     Dates: start: 20100101

REACTIONS (3)
  - Abortion induced [Fatal]
  - Univentricular heart [Unknown]
  - Maternal exposure during pregnancy [Unknown]
